FAERS Safety Report 20825659 (Version 1)
Quarter: 2022Q2

REPORT INFORMATION
  Report Type: Spontaneous
  Country: US (occurrence: None)
  Receive Date: 20220512
  Receipt Date: 20220512
  Transmission Date: 20220720
  Serious: Yes (Hospitalization)
  Sender: FDA-Public Use
  Company Number: None

PATIENT
  Age: 62 Year
  Sex: Male
  Weight: 76.5 kg

DRUGS (12)
  1. PHENYTOIN [Suspect]
     Active Substance: PHENYTOIN
     Indication: Epilepsy
     Dosage: OTHER QUANTITY : 2 CAPSULE(S);?FREQUENCY : AT BEDTIME;?
     Route: 048
  2. FLUOXETINE [Concomitant]
     Active Substance: FLUOXETINE HYDROCHLORIDE
  3. PREDNISONE [Concomitant]
     Active Substance: PREDNISONE
  4. LOSARTAN [Concomitant]
     Active Substance: LOSARTAN
  5. CIALIS [Concomitant]
     Active Substance: TADALAFIL
  6. BLISTER PAK TABLETS [Concomitant]
  7. DOXAZOSIN [Concomitant]
     Active Substance: DOXAZOSIN MESYLATE
  8. FAMOTIDINE [Concomitant]
     Active Substance: FAMOTIDINE
  9. ALPRAZOLAM [Concomitant]
     Active Substance: ALPRAZOLAM
  10. LEVOTHYROXINE [Concomitant]
     Active Substance: LEVOTHYROXINE
  11. FLUTICASONE [Concomitant]
     Active Substance: FLUTICASONE
  12. POTASSIUM CITRATE [Concomitant]
     Active Substance: POTASSIUM CITRATE

REACTIONS (1)
  - Anaesthetic complication [None]

NARRATIVE: CASE EVENT DATE: 20200828
